FAERS Safety Report 5442162-3 (Version None)
Quarter: 2007Q3

REPORT INFORMATION
  Report Type: 
  Country: None (occurrence: None)
  Receive Date: 20070731
  Receipt Date: 20070525
  Transmission Date: 20080115
  Serious: No
  Sender: FDA-Public Use
  Company Number: US200705007055

PATIENT
  Age: 61 Year
  Sex: Female

DRUGS (3)
  1. BYETTA [Suspect]
     Dosage: 5 UG, DAILY (1/D)
     Dates: start: 20070401, end: 20070521
  2. BYETTA [Suspect]
     Dosage: 5 UG, DAILY (1/D)
     Dates: start: 20070301
  3. BYETTA [Suspect]
     Dosage: 5 UG, DAILY (1/D)
     Dates: start: 20070522

REACTIONS (5)
  - ASTHENIA [None]
  - BLOOD GLUCOSE ABNORMAL [None]
  - DIZZINESS [None]
  - NAUSEA [None]
  - VOMITING [None]
